FAERS Safety Report 23074946 (Version 2)
Quarter: 2023Q4

REPORT INFORMATION
  Report Type: Report from Study
  Country: IT (occurrence: IT)
  Receive Date: 20231017
  Receipt Date: 20231023
  Transmission Date: 20240110
  Serious: Yes (Hospitalization)
  Sender: FDA-Public Use
  Company Number: IT-Eisai Medical Research-EC-2023-148585

PATIENT
  Age: 61 Year
  Sex: Male
  Weight: 89.0 kg

DRUGS (5)
  1. LENVATINIB [Suspect]
     Active Substance: LENVATINIB
     Indication: Malignant melanoma
     Route: 048
     Dates: start: 20230210, end: 20230818
  2. QUAVONLIMAB [Suspect]
     Active Substance: QUAVONLIMAB
     Indication: Malignant melanoma
     Dosage: MK-1308A (QUAVONLIMAB (MK-1308) 25 MG + PEMBROLIZUMAB (MK-3475) 400 MG
     Route: 042
     Dates: start: 20230210, end: 20230728
  3. AMLODIPINE [Concomitant]
     Active Substance: AMLODIPINE BESYLATE
     Dates: start: 20230218
  4. RAMIPRIL [Concomitant]
     Active Substance: RAMIPRIL
     Dates: start: 20230224
  5. PEMBROLIZUMAB [Suspect]
     Active Substance: PEMBROLIZUMAB

REACTIONS (1)
  - Diarrhoea [Recovered/Resolved]

NARRATIVE: CASE EVENT DATE: 20230811
